FAERS Safety Report 17780902 (Version 1)
Quarter: 2020Q2

REPORT INFORMATION
  Report Type: Spontaneous
  Country: DK (occurrence: DK)
  Receive Date: 20200514
  Receipt Date: 20200514
  Transmission Date: 20200714
  Serious: Yes (Life-Threatening, Hospitalization)
  Sender: FDA-Public Use
  Company Number: DK-ASTRAZENECA-2020SE62583

PATIENT
  Age: 83 Year
  Sex: Female
  Weight: 43 kg

DRUGS (2)
  1. ACETYLSALICYLIC ACID [Suspect]
     Active Substance: ASPIRIN
     Indication: THROMBOSIS PROPHYLAXIS
     Route: 048
     Dates: start: 20181021
  2. BRILIQUE [Suspect]
     Active Substance: TICAGRELOR
     Indication: ARTERIOSCLEROSIS CORONARY ARTERY
     Route: 048
     Dates: start: 20181021, end: 20200420

REACTIONS (3)
  - Transfusion [Unknown]
  - Hypotension [Recovered/Resolved]
  - Rectal haemorrhage [Recovered/Resolved]

NARRATIVE: CASE EVENT DATE: 202004
